FAERS Safety Report 5330297-5 (Version None)
Quarter: 2007Q2

REPORT INFORMATION
  Report Type: 
  Country: None (occurrence: None)
  Receive Date: 20070521
  Receipt Date: 20070514
  Transmission Date: 20071010
  Serious: Yes (Hospitalization)
  Sender: FDA-Public Use
  Company Number: HQWYE172114MAY07

PATIENT
  Age: 75 Year
  Sex: Male

DRUGS (5)
  1. CORDARONE [Suspect]
     Indication: CAROTID ARTERY STENOSIS
     Dosage: 200 MG TABLET/DAILY DOSE NOT PROVIDED
     Route: 048
  2. TAHOR [Suspect]
     Dosage: NOT PROVIDED
     Route: 048
  3. PERINDOPRIL ERBUMINE [Suspect]
     Dosage: NOT PROVIDED
     Route: 048
  4. LARGACTIL [Suspect]
     Indication: HICCUPS
     Dosage: NOT PROVIDED
     Route: 048
     Dates: end: 20070309
  5. PREVISCAN [Suspect]
     Dosage: NOT PROVIDED
     Route: 048

REACTIONS (5)
  - ALANINE AMINOTRANSFERASE INCREASED [None]
  - ASPARTATE AMINOTRANSFERASE INCREASED [None]
  - BILIARY CYST [None]
  - GAMMA-GLUTAMYLTRANSFERASE INCREASED [None]
  - WEIGHT DECREASED [None]
